FAERS Safety Report 22168278 (Version 2)
Quarter: 2023Q2

REPORT INFORMATION
  Report Type: Spontaneous
  Country: US (occurrence: US)
  Receive Date: 20230403
  Receipt Date: 20230413
  Transmission Date: 20230722
  Serious: No
  Sender: FDA-Public Use
  Company Number: US-PFIZER INC-PV202300060119

PATIENT
  Sex: Female

DRUGS (1)
  1. CLINDAMYCIN HYDROCHLORIDE [Suspect]
     Active Substance: CLINDAMYCIN HYDROCHLORIDE
     Dosage: UNK

REACTIONS (6)
  - Illness [Unknown]
  - Pain [Unknown]
  - Axillary pain [Unknown]
  - Arthralgia [Unknown]
  - Muscle spasms [Unknown]
  - Skin exfoliation [Unknown]
